FAERS Safety Report 5472704-3 (Version None)
Quarter: 2007Q4

REPORT INFORMATION
  Report Type: 
  Country: None (occurrence: None)
  Receive Date: 20071001
  Receipt Date: 20060925
  Transmission Date: 20080405
  Serious: Yes (Other)
  Sender: FDA-Public Use
  Company Number: US-ASTRAZENECA-2006UW18631

PATIENT
  Sex: Female

DRUGS (3)
  1. ARIMIDEX [Suspect]
     Route: 048
  2. TAMOXIFEN CITRATE [Suspect]
     Route: 048
  3. BONDRONAT [Concomitant]

REACTIONS (2)
  - DISEASE PROGRESSION [None]
  - METASTASES TO BONE [None]
